FAERS Safety Report 22058600 (Version 1)
Quarter: 2023Q1

REPORT INFORMATION
  Report Type: Report from Study
  Country: JP (occurrence: JP)
  Receive Date: 20230303
  Receipt Date: 20230303
  Transmission Date: 20230418
  Serious: Yes (Death, Hospitalization, Other)
  Sender: FDA-Public Use
  Company Number: JP-JNJFOC-20201111348

PATIENT

DRUGS (2)
  1. RISPERDAL [Suspect]
     Active Substance: RISPERIDONE
     Indication: Product used for unknown indication
     Dosage: BETWEEN JULY 2010 AND MARCH 2018
     Route: 048
  2. HALOPERIDOL [Concomitant]
     Active Substance: HALOPERIDOL

REACTIONS (5)
  - Hospitalisation [Fatal]
  - Pneumonia [Unknown]
  - Urinary tract infection [Unknown]
  - Sepsis [Unknown]
  - Postoperative wound infection [Unknown]
